FAERS Safety Report 6762548-4 (Version None)
Quarter: 2010Q2

REPORT INFORMATION
  Report Type: 
  Country: None (occurrence: None)
  Receive Date: 20100609
  Receipt Date: 20100528
  Transmission Date: 20101027
  Serious: Yes (Hospitalization, Other)
  Sender: FDA-Public Use
  Company Number: PL-PFIZER INC-2010047486

PATIENT
  Age: 42 Year
  Sex: Female
  Weight: 105 kg

DRUGS (2)
  1. ZELDOX [Suspect]
     Indication: SCHIZOPHRENIA
     Dosage: 80 MG, 2X/DAY
     Route: 048
     Dates: start: 20100315, end: 20100326
  2. KLOZAPOL [Concomitant]
     Indication: SCHIZOPHRENIA
     Dosage: UNK
     Route: 048
     Dates: start: 20100311, end: 20100326

REACTIONS (4)
  - MENTAL DISORDER [None]
  - NEUROLEPTIC MALIGNANT SYNDROME [None]
  - SWELLING [None]
  - URINARY RETENTION [None]
